FAERS Safety Report 5391730-6 (Version None)
Quarter: 2007Q3

REPORT INFORMATION
  Report Type: 
  Country: None (occurrence: None)
  Receive Date: 20070717
  Receipt Date: 20070702
  Transmission Date: 20080115
  Serious: Yes (Hospitalization)
  Sender: FDA-Public Use
  Company Number: 2007000968

PATIENT
  Age: 72 Year
  Sex: Male

DRUGS (3)
  1. TARCEVA [Suspect]
     Indication: LUNG CANCER METASTATIC
     Dosage: 150 MG (QD), ORAL
     Route: 048
     Dates: start: 20070206, end: 20070323
  2. TENORMIN [Concomitant]
  3. PRAVASTATIN [Concomitant]

REACTIONS (1)
  - UVEITIS [None]
